FAERS Safety Report 8746041 (Version 2)
Quarter: 2012Q4

REPORT INFORMATION
  Report Type: 
  Country: PT (occurrence: PT)
  Receive Date: 20120827
  Receipt Date: 20121123
  Transmission Date: 20130627
  Serious: Yes (Other)
  Sender: FDA-Public Use
  Company Number: PT-JNJFOC-20120801428

PATIENT
  Sex: Female

DRUGS (1)
  1. EVRA [Suspect]
     Indication: POLYP
     Route: 062
     Dates: start: 20120726

REACTIONS (8)
  - Breast cyst [Unknown]
  - Vasodilatation [Unknown]
  - Menstruation irregular [Unknown]
  - Pollakiuria [Unknown]
  - Breast swelling [Unknown]
  - Drug dose omission [Recovered/Resolved]
  - Off label use [Not Recovered/Not Resolved]
  - Drug dose omission [Recovered/Resolved]
